FAERS Safety Report 7227930-X (Version None)
Quarter: 2011Q1

REPORT INFORMATION
  Report Type: 
  Country: None (occurrence: None)
  Receive Date: 20110114
  Receipt Date: 20110112
  Transmission Date: 20110831
  Serious: Yes (Life-Threatening)
  Sender: FDA-Public Use
  Company Number: JP-PFIZER INC-2011007379

PATIENT
  Age: 78 Year
  Sex: Female

DRUGS (4)
  1. ROCEPHIN [Concomitant]
     Dosage: 1 G/DAY
     Dates: start: 20101128, end: 20101203
  2. MAXIPIME [Concomitant]
     Dosage: 1 G/DAY
     Route: 041
     Dates: start: 20101213, end: 20101216
  3. ZOLOFT [Suspect]
     Indication: INSOMNIA
  4. ZOLOFT [Suspect]
     Indication: DEPRESSION
     Dosage: 50 MG/DAY
     Route: 048
     Dates: start: 20101127, end: 20101213

REACTIONS (1)
  - DRUG ERUPTION [None]
